FAERS Safety Report 16124279 (Version 1)
Quarter: 2019Q1

REPORT INFORMATION
  Report Type: Spontaneous
  Country: CZ (occurrence: CZ)
  Receive Date: 20190327
  Receipt Date: 20190327
  Transmission Date: 20190418
  Serious: Yes (Other)
  Sender: FDA-Public Use
  Company Number: PHHY2019CZ067084

PATIENT
  Age: 52 Year
  Sex: Male

DRUGS (8)
  1. FLUTIFORM [Concomitant]
     Active Substance: FLUTICASONE PROPIONATE\FORMOTEROL FUMARATE
     Indication: PRODUCT USED FOR UNKNOWN INDICATION
     Dosage: 250/10 ?G
     Route: 065
  2. CICLESONIDE [Suspect]
     Active Substance: CICLESONIDE
     Indication: ASTHMA
     Dosage: 160 UG, BID
     Route: 055
  3. SALBUTAMOL [Concomitant]
     Active Substance: ALBUTEROL
     Indication: PRODUCT USED FOR UNKNOWN INDICATION
     Dosage: UPTO 5X A DAY
     Route: 065
  4. CICLESONIDE [Suspect]
     Active Substance: CICLESONIDE
     Dosage: 160 UG, BID (TWO TIMES TWICE DAILY)
     Route: 055
  5. FORMOTEROL [Suspect]
     Active Substance: FORMOTEROL
     Indication: ASTHMA
     Dosage: 12 UG, BID
     Route: 055
  6. FORMOTEROL [Suspect]
     Active Substance: FORMOTEROL
     Dosage: 12 UG, UNK (TWO TIMES TWICE DAILY)
     Route: 055
  7. LEVOCETIRIZINE [Concomitant]
     Active Substance: LEVOCETIRIZINE
     Indication: PRODUCT USED FOR UNKNOWN INDICATION
     Route: 065
  8. SALBUTAMOL [Concomitant]
     Active Substance: ALBUTEROL
     Dosage: UNK (3X A DAY)

REACTIONS (4)
  - Obstructive airways disorder [Recovering/Resolving]
  - Nocturnal dyspnoea [Recovering/Resolving]
  - Dyspnoea exertional [Recovering/Resolving]
  - Cough [Recovering/Resolving]
